FAERS Safety Report 11668340 (Version 1)
Quarter: 2015Q4

REPORT INFORMATION
  Report Type: Spontaneous
  Country: FR (occurrence: FR)
  Receive Date: 20151027
  Receipt Date: 20151027
  Transmission Date: 20160304
  Serious: Yes (Hospitalization)
  Sender: FDA-Public Use
  Company Number: FR-PFIZER INC-2015363195

PATIENT
  Age: 69 Year
  Sex: Male

DRUGS (7)
  1. IRINOTECAN HCL [Suspect]
     Active Substance: IRINOTECAN HYDROCHLORIDE
     Dosage: 8 MG, UNK
     Route: 041
     Dates: start: 20150609
  2. CETUXIMAB [Suspect]
     Active Substance: CETUXIMAB
     Dosage: 5 MG, UNK
     Route: 042
     Dates: start: 20150609
  3. ELVORINE [Suspect]
     Active Substance: LEUCOVORIN CALCIUM
     Dosage: 1000 MG, UNK
     Route: 041
     Dates: start: 20150609
  4. FLUOROURACIL. [Suspect]
     Active Substance: FLUOROURACIL
     Dosage: 4800 MG, UNK
     Route: 041
     Dates: start: 20150609
  5. ZOPHREN /00955302/ [Concomitant]
     Active Substance: ONDANSETRON
     Dosage: 400 MG, UNK
     Route: 041
     Dates: start: 20150609
  6. MEDROL [Suspect]
     Active Substance: METHYLPREDNISOLONE
     Dosage: 120 MG, UNK
     Dates: start: 20150609
  7. SOLU-MEDROL [Suspect]
     Active Substance: METHYLPREDNISOLONE SODIUM SUCCINATE
     Dosage: 360 MG, UNK
     Route: 041
     Dates: start: 20150609

REACTIONS (2)
  - Ejection fraction abnormal [Recovered/Resolved with Sequelae]
  - Cardiomyopathy [Recovered/Resolved with Sequelae]

NARRATIVE: CASE EVENT DATE: 201506
